FAERS Safety Report 7134894-6 (Version None)
Quarter: 2010Q4

REPORT INFORMATION
  Report Type: 
  Country: None (occurrence: None)
  Receive Date: 20101129
  Receipt Date: 20101129
  Transmission Date: 20110411
  Serious: Yes (Other)
  Sender: FDA-Public Use
  Company Number: None

PATIENT
  Age: 35 Year
  Sex: Female
  Weight: 77.3 kg

DRUGS (4)
  1. SUMATRIPTAN SUCCINATE [Suspect]
     Indication: MIGRAINE
     Dosage: 6 MG ONCE INJECTION
     Dates: start: 20101022
  2. MINERAL SUPPLEMENT [Concomitant]
  3. FISH OIL [Concomitant]
  4. FIORECET [Concomitant]

REACTIONS (10)
  - AMNESIA [None]
  - CONFUSIONAL STATE [None]
  - DECREASED APPETITE [None]
  - FLAT AFFECT [None]
  - HYPOAESTHESIA [None]
  - NASAL OEDEMA [None]
  - PAIN [None]
  - PAROSMIA [None]
  - TENSION HEADACHE [None]
  - THROAT TIGHTNESS [None]
